FAERS Safety Report 10241682 (Version 4)
Quarter: 2014Q3

REPORT INFORMATION
  Report Type: Spontaneous
  Country: US (occurrence: US)
  Receive Date: 20140617
  Receipt Date: 20140805
  Transmission Date: 20150326
  Serious: Yes (Other)
  Sender: FDA-Public Use
  Company Number: US-ASTRAZENECA-2014SE29011

PATIENT
  Age: 31147 Day
  Sex: Female
  Weight: 49.9 kg

DRUGS (8)
  1. BUDESONIDE. [Suspect]
     Active Substance: BUDESONIDE
     Indication: CROHN^S DISEASE
     Route: 048
     Dates: start: 20140410, end: 20140424
  2. OTC MEDICATION [Concomitant]
     Active Substance: UNSPECIFIED INGREDIENT
  3. ATENOLOL. [Suspect]
     Active Substance: ATENOLOL
     Indication: BLOOD PRESSURE ABNORMAL
     Dosage: GENERIC
     Route: 048
  4. BUDESONIDE. [Suspect]
     Active Substance: BUDESONIDE
     Indication: CROHN^S DISEASE
     Route: 048
  5. SPIRONOLACTONE. [Concomitant]
     Active Substance: SPIRONOLACTONE
     Indication: DIURETIC THERAPY
     Route: 048
  6. LOTREL GENERIC [Concomitant]
     Indication: BLOOD PRESSURE ABNORMAL
     Dosage: 2.5/10 MG QD
     Route: 048
  7. ATENOLOL. [Suspect]
     Active Substance: ATENOLOL
     Indication: BLOOD PRESSURE ABNORMAL
     Route: 048
  8. BABY ASPIRIN [Concomitant]
     Active Substance: ASPIRIN
     Indication: COLONOSCOPY
     Route: 048
     Dates: start: 2009

REACTIONS (30)
  - Splenic artery aneurysm [Unknown]
  - Abdominal discomfort [Unknown]
  - Intervertebral disc degeneration [Unknown]
  - Colitis [Unknown]
  - Infrequent bowel movements [Unknown]
  - Crohn^s disease [Unknown]
  - Arthritis [Unknown]
  - Osteoporosis [Unknown]
  - Diverticulum [Unknown]
  - Abdominal pain [Unknown]
  - Gastritis [Unknown]
  - Adverse drug reaction [Unknown]
  - Scoliosis [Unknown]
  - Anorectal discomfort [Unknown]
  - Atrial fibrillation [Unknown]
  - Gastrointestinal motility disorder [Unknown]
  - Cataract [Unknown]
  - Diarrhoea [Unknown]
  - Gastrointestinal hypermotility [Not Recovered/Not Resolved]
  - Abdominal distension [Unknown]
  - Dysphagia [Unknown]
  - Epigastric discomfort [Unknown]
  - Intracranial aneurysm [Unknown]
  - Arteriosclerosis [Unknown]
  - Hernia [Unknown]
  - Pneumonia [Unknown]
  - Constipation [Unknown]
  - Biliary dyskinesia [Unknown]
  - Pancreatic cyst [Unknown]
  - Weight decreased [Unknown]

NARRATIVE: CASE EVENT DATE: 20140418
